FAERS Safety Report 9089264 (Version 1)
Quarter: 2013Q1

REPORT INFORMATION
  Report Type: Spontaneous
  Country: BR (occurrence: BR)
  Receive Date: 20130131
  Receipt Date: 20130131
  Transmission Date: 20140127
  Serious: Yes (Hospitalization, Other)
  Sender: FDA-Public Use
  Company Number: PHHY2013BR006479

PATIENT
  Age: 18 Year
  Sex: Male

DRUGS (3)
  1. AMLODIPINE [Suspect]
     Dosage: 30 DF, UNK
  2. HYDROCHLOROTHIAZIDE [Suspect]
     Dosage: 12 DF, UNK
  3. FLUNARIZINE [Suspect]
     Dosage: 25 DF, UNK

REACTIONS (20)
  - Anuria [Recovering/Resolving]
  - Poor peripheral circulation [Recovering/Resolving]
  - Pulmonary congestion [Recovering/Resolving]
  - Acute pulmonary oedema [Recovering/Resolving]
  - Tachypnoea [Recovering/Resolving]
  - Bundle branch block left [Recovering/Resolving]
  - Atrioventricular block [Recovering/Resolving]
  - Electrocardiogram PR prolongation [Recovering/Resolving]
  - Electrocardiogram ST segment depression [Recovering/Resolving]
  - Supraventricular extrasystoles [Recovering/Resolving]
  - Vertigo [Recovering/Resolving]
  - Arrhythmia [Recovering/Resolving]
  - Headache [Recovering/Resolving]
  - Dizziness [Recovering/Resolving]
  - Paraesthesia [Recovering/Resolving]
  - Bradycardia [Recovering/Resolving]
  - Hypotension [Recovering/Resolving]
  - Hyperglycaemia [Recovering/Resolving]
  - Suicide attempt [Unknown]
  - Toxicity to various agents [Recovering/Resolving]
